FAERS Safety Report 9228534 (Version 1)
Quarter: 2013Q2

REPORT INFORMATION
  Report Type: Spontaneous
  Country: DE (occurrence: IT)
  Receive Date: 20130412
  Receipt Date: 20130412
  Transmission Date: 20140414
  Serious: Yes (Hospitalization)
  Sender: FDA-Public Use
  Company Number: IT-PFIZER INC-2006155009

PATIENT
  Age: 35 Year
  Sex: Female

DRUGS (4)
  1. IBUPROFEN [Suspect]
     Route: 048
  2. NIMESULIDE [Suspect]
     Route: 048
  3. DICLOFENAC [Suspect]
     Route: 048
  4. CONTRAMAL [Suspect]
     Indication: HEADACHE
     Dosage: 3000 MG, 1X/DAY
     Route: 048

REACTIONS (3)
  - Overdose [Recovered/Resolved]
  - Presyncope [Recovered/Resolved]
  - Drug abuse [Recovered/Resolved]
